FAERS Safety Report 6572116-5 (Version None)
Quarter: 2010Q1

REPORT INFORMATION
  Report Type: 
  Country: None (occurrence: None)
  Receive Date: 20100205
  Receipt Date: 20100127
  Transmission Date: 20100710
  Serious: Yes (Other)
  Sender: FDA-Public Use
  Company Number: US-AMGEN-QUU388798

PATIENT
  Sex: Male

DRUGS (3)
  1. NPLATE [Suspect]
     Indication: IDIOPATHIC THROMBOCYTOPENIC PURPURA
     Dates: start: 20091013
  2. METOPROLOL TARTRATE [Concomitant]
  3. VASOTEC [Concomitant]

REACTIONS (2)
  - DYSPNOEA [None]
  - LUNG INFILTRATION [None]
